FAERS Safety Report 9654507 (Version 1)
Quarter: 2013Q4

REPORT INFORMATION
  Report Type: Spontaneous
  Country: US (occurrence: US)
  Receive Date: 20131029
  Receipt Date: 20131029
  Transmission Date: 20140711
  Serious: No
  Sender: FDA-Public Use
  Company Number: US-BIOGENIDEC-2013BI084927

PATIENT
  Age: 59 Year
  Sex: Female

DRUGS (10)
  1. TECFIDERA [Suspect]
     Indication: MULTIPLE SCLEROSIS
     Route: 048
     Dates: start: 20130621
  2. TECFIDERA [Suspect]
     Indication: MULTIPLE SCLEROSIS
     Route: 048
     Dates: start: 20130703, end: 201308
  3. TECFIDERA [Suspect]
     Indication: MULTIPLE SCLEROSIS
     Route: 048
     Dates: start: 20130819, end: 20130823
  4. AMPYRA [Concomitant]
  5. IMODIUM [Concomitant]
  6. PRILOSEC [Concomitant]
  7. PROZAC [Concomitant]
  8. TEMAZEPAM [Concomitant]
  9. VESICARE [Concomitant]
  10. VITAMIN D [Concomitant]

REACTIONS (6)
  - Influenza like illness [Unknown]
  - Pain [Unknown]
  - Decreased appetite [Unknown]
  - Prescribed underdose [Unknown]
  - Nausea [Unknown]
  - Diarrhoea [Unknown]
